FAERS Safety Report 23039394 (Version 5)
Quarter: 2023Q4

REPORT INFORMATION
  Report Type: Spontaneous
  Country: JP (occurrence: JP)
  Receive Date: 20231006
  Receipt Date: 20231115
  Transmission Date: 20240110
  Serious: Yes (Other)
  Sender: FDA-Public Use
  Company Number: JP-AMGEN-JPNSP2023175966

PATIENT
  Age: 82 Year
  Sex: Male
  Weight: 60 kg

DRUGS (3)
  1. EVENITY [Suspect]
     Active Substance: ROMOSOZUMAB-AQQG
     Indication: Osteoporosis
     Dosage: 210 MILLIGRAM, QMO
     Route: 058
     Dates: start: 20211112
  2. ELDECALCITOL [Concomitant]
     Active Substance: ELDECALCITOL
     Indication: Osteoporosis
     Dosage: 0.7 MICROGRAM, QD IN MORNING
     Dates: start: 20201106
  3. MIROGABALIN BESYLATE [Concomitant]
     Active Substance: MIROGABALIN BESYLATE
     Indication: Intervertebral disc protrusion
     Dosage: 1 DOSAGE FORM, BID MORNING AND EVENING
     Dates: start: 20211012

REACTIONS (1)
  - Prostate cancer [Unknown]
